FAERS Safety Report 9080306 (Version 1)
Quarter: 2013Q1

REPORT INFORMATION
  Report Type: Spontaneous
  Country: GB (occurrence: GB)
  Receive Date: 20130218
  Receipt Date: 20130218
  Transmission Date: 20140127
  Serious: Yes (Hospitalization)
  Sender: FDA-Public Use
  Company Number: GB-ROXANE LABORATORIES, INC.-2013-RO-00245RO

PATIENT
  Age: 76 Year
  Sex: Female
  Weight: 45 kg

DRUGS (1)
  1. DIGOXIN [Suspect]

REACTIONS (1)
  - Diabetic ketoacidosis [Recovered/Resolved]
